FAERS Safety Report 18584457 (Version 2)
Quarter: 2020Q4

REPORT INFORMATION
  Report Type: Spontaneous
  Country: GB (occurrence: GB)
  Receive Date: 20201207
  Receipt Date: 20201214
  Transmission Date: 20210114
  Serious: Yes (Hospitalization, Other)
  Sender: FDA-Public Use
  Company Number: GB-STRIDES ARCOLAB LIMITED-2020SP014926

PATIENT
  Age: 20 Year
  Sex: Male

DRUGS (7)
  1. RIFAMPICIN [Suspect]
     Active Substance: RIFAMPIN
     Indication: PRODUCT USED FOR UNKNOWN INDICATION
     Dosage: UNK
     Route: 061
  2. RANITIDINE. [Suspect]
     Active Substance: RANITIDINE
     Indication: PRODUCT USED FOR UNKNOWN INDICATION
     Dosage: UNK (30% PET)
     Route: 062
  3. VANCOMYCIN [Suspect]
     Active Substance: VANCOMYCIN
     Dosage: PATCH TEST (WITH AND WITHOUT ADHESIVE TAPE STRIPPING) WAS PERFORMED
     Route: 062
  4. RIFAMPICIN [Suspect]
     Active Substance: RIFAMPIN
     Dosage: 300 MILLIGRAM
     Route: 048
  5. RANITIDINE. [Suspect]
     Active Substance: RANITIDINE
     Dosage: UNK, PATCH TEST (WITH AND WITHOUT ADHESIVE TAPE STRIPPING) WAS PERFORMED
     Route: 062
  6. VANCOMYCIN [Suspect]
     Active Substance: VANCOMYCIN
     Indication: PRODUCT USED FOR UNKNOWN INDICATION
     Dosage: UNK
     Route: 062
  7. RIFAMPICIN [Suspect]
     Active Substance: RIFAMPIN
     Dosage: UNK,PATCH TEST (WITH AND WITHOUT ADHESIVE TAPE STRIPPING) WAS PERFORMED
     Route: 062

REACTIONS (10)
  - Drug hypersensitivity [Recovered/Resolved]
  - Erythema [Recovered/Resolved]
  - Rash [Recovered/Resolved]
  - Drug reaction with eosinophilia and systemic symptoms [Recovered/Resolved]
  - Lymphadenopathy [Recovered/Resolved]
  - Erythema multiforme [Recovered/Resolved]
  - Blister [Recovered/Resolved]
  - Swelling face [Recovered/Resolved]
  - Pruritus [Recovered/Resolved]
  - Lymphopenia [Recovered/Resolved]

NARRATIVE: CASE EVENT DATE: 201607
